APPROVED DRUG PRODUCT: AVELOX
Active Ingredient: MOXIFLOXACIN HYDROCHLORIDE
Strength: EQ 400MG BASE **Federal Register determination that product was not discontinued or withdrawn for safety or effectiveness reasons**
Dosage Form/Route: TABLET;ORAL
Application: N021085 | Product #001
Applicant: BAYER HEALTHCARE PHARMACEUTICALS INC
Approved: Dec 10, 1999 | RLD: Yes | RS: No | Type: DISCN